FAERS Safety Report 4551274-8 (Version None)
Quarter: 2005Q1

REPORT INFORMATION
  Report Type: 
  Country: None (occurrence: None)
  Receive Date: 20050110
  Receipt Date: 20041223
  Transmission Date: 20050727
  Serious: Yes (Hospitalization)
  Sender: FDA-Public Use
  Company Number: DSA_25531_2004

PATIENT
  Age: 41 Year
  Sex: Female

DRUGS (4)
  1. LORAZEPAM [Suspect]
     Dosage: DF ONCE PO
     Route: 048
     Dates: start: 20041130, end: 20041130
  2. GEODON [Suspect]
     Dosage: DF ONCE PO
     Route: 048
     Dates: start: 20041130, end: 20041130
  3. HOGGAR N [Suspect]
     Dosage: DF ONCE PO
     Route: 048
     Dates: start: 20041130, end: 20041130
  4. LUDIOMIL [Suspect]
     Dosage: DF ONCE PO
     Route: 048
     Dates: start: 20041130, end: 20041130

REACTIONS (3)
  - BLOOD CREATINE PHOSPHOKINASE INCREASED [None]
  - CONVULSION [None]
  - INTENTIONAL MISUSE [None]
